FAERS Safety Report 7516523-2 (Version None)
Quarter: 2011Q2

REPORT INFORMATION
  Report Type: 
  Country: None (occurrence: None)
  Receive Date: 20110601
  Receipt Date: 20110524
  Transmission Date: 20111010
  Serious: Yes (Other)
  Sender: FDA-Public Use
  Company Number: B0684336A

PATIENT
  Sex: Female
  Weight: 180 kg

DRUGS (2)
  1. OSTRADIOL [Concomitant]
     Dosage: 2MG PER DAY
  2. PROPAFENONE HCL [Suspect]
     Indication: EXTRASYSTOLES
     Dosage: 600MG PER DAY
     Route: 048
     Dates: start: 20100813, end: 20100825

REACTIONS (13)
  - EYE IRRITATION [None]
  - SLEEP DISORDER [None]
  - OPHTHALMOPLEGIA [None]
  - NAUSEA [None]
  - COLD SWEAT [None]
  - DIZZINESS [None]
  - EXTRASYSTOLES [None]
  - PALLOR [None]
  - TREMOR [None]
  - DYSPNOEA [None]
  - RAYNAUD'S PHENOMENON [None]
  - VOMITING [None]
  - HEADACHE [None]
